FAERS Safety Report 12647447 (Version 1)
Quarter: 2016Q3

REPORT INFORMATION
  Report Type: Spontaneous
  Country: US (occurrence: US)
  Receive Date: 20160812
  Receipt Date: 20160812
  Transmission Date: 20161109
  Serious: No
  Sender: FDA-Public Use
  Company Number: US-BRAINTREE LABORATORIES-150527-1

PATIENT
  Age: 60 Year
  Sex: Female

DRUGS (1)
  1. GOLYTELY [Suspect]
     Active Substance: POLYETHYLENE GLYCOL 3350\POTASSIUM CHLORIDE\SODIUM BICARBONATE\SODIUM CHLORIDE\SODIUM SULFATE ANHYDROUS
     Indication: COLONOSCOPY
     Dosage: 3L
     Route: 048
     Dates: start: 20151214, end: 20151214

REACTIONS (9)
  - Blood pressure increased [None]
  - Oesophageal stenosis [None]
  - Headache [None]
  - Seizure [None]
  - Abdominal pain [None]
  - Insomnia [None]
  - Vertigo [None]
  - Visual impairment [None]
  - Decreased appetite [None]

NARRATIVE: CASE EVENT DATE: 20151214
